FAERS Safety Report 5063470-4 (Version None)
Quarter: 2006Q3

REPORT INFORMATION
  Report Type: 
  Country: None (occurrence: None)
  Receive Date: 20060727
  Receipt Date: 20060717
  Transmission Date: 20061208
  Serious: Yes (Hospitalization)
  Sender: FDA-Public Use
  Company Number: FR-GLAXOSMITHKLINE-B0431254A

PATIENT
  Age: 89 Year
  Sex: Female

DRUGS (11)
  1. DEROXAT [Suspect]
     Dosage: 10MG PER DAY
     Route: 048
     Dates: end: 20060619
  2. FLUDEX [Concomitant]
     Indication: ESSENTIAL HYPERTENSION
     Route: 048
     Dates: end: 20060613
  3. ASPIRIN [Concomitant]
     Indication: CEREBROVASCULAR DISORDER
     Dosage: 75MG PER DAY
     Route: 048
  4. NEXIUM [Concomitant]
     Dosage: 20MG PER DAY
     Route: 048
     Dates: end: 20060625
  5. COVERSYL [Concomitant]
     Indication: ESSENTIAL HYPERTENSION
     Dosage: 4MG PER DAY
     Route: 048
  6. ZOPICLONE [Concomitant]
     Dosage: 3.75MG PER DAY
     Route: 048
  7. TRIMEBUTINE [Concomitant]
     Dosage: 3TAB PER DAY
     Route: 048
     Dates: end: 20060601
  8. EFFERALGAN [Concomitant]
     Dosage: 1TAB THREE TIMES PER DAY
     Route: 048
     Dates: end: 20060601
  9. SPASFON LYOC [Concomitant]
     Route: 065
     Dates: end: 20060601
  10. METEOXANE [Concomitant]
     Dosage: 3UNIT PER DAY
     Route: 065
     Dates: end: 20060601
  11. MOVICOL [Concomitant]
     Dosage: 1UNIT PER DAY
     Route: 065
     Dates: end: 20060601

REACTIONS (2)
  - FALL [None]
  - HYPONATRAEMIA [None]
